FAERS Safety Report 20956167 (Version 1)
Quarter: 2022Q2

REPORT INFORMATION
  Report Type: Spontaneous
  Country: IN (occurrence: IN)
  Receive Date: 20220614
  Receipt Date: 20220614
  Transmission Date: 20220721
  Serious: Yes (Other)
  Sender: FDA-Public Use
  Company Number: IN-LUPIN LIMITED-2022-08527

PATIENT
  Age: 18 Year
  Sex: Female

DRUGS (6)
  1. RIFAMPIN [Suspect]
     Active Substance: RIFAMPIN
     Indication: Tuberculosis of eye
     Dosage: 600 MG, DURATION OF 9 MONTHS
     Route: 065
  2. PYRAZINAMIDE [Suspect]
     Active Substance: PYRAZINAMIDE
     Indication: Tuberculosis of eye
     Dosage: 1500 MG, DURATION OF 9 MONTHS
     Route: 065
  3. ETHAMBUTOL [Suspect]
     Active Substance: ETHAMBUTOL HYDROCHLORIDE
     Indication: Tuberculosis of eye
     Dosage: 1000 MG, DURATION OF 9 MONTHS
     Route: 065
  4. ISONIAZID [Suspect]
     Active Substance: ISONIAZID
     Indication: Tuberculosis of eye
     Dosage: 300 MG, DURATION OF 9 MONTHS
     Route: 065
  5. RANIBIZUMAB [Concomitant]
     Active Substance: RANIBIZUMAB
     Indication: Tuberculosis of eye
     Dosage: (0.05 ML  OF 10 MG/ML)
  6. METHOTREXATE [Concomitant]
     Active Substance: METHOTREXATE
     Indication: Tuberculosis of eye
     Dosage: UNK, 400 MICROGRAM /0.1 ML

REACTIONS (2)
  - Paradoxical drug reaction [Recovered/Resolved]
  - Condition aggravated [Recovered/Resolved]
